FAERS Safety Report 14624357 (Version 1)
Quarter: 2018Q1

REPORT INFORMATION
  Report Type: Spontaneous
  Country: US (occurrence: US)
  Receive Date: 20180309
  Receipt Date: 20180309
  Transmission Date: 20180509
  Serious: Yes (Disabling)
  Sender: FDA-Public Use
  Company Number: None

PATIENT
  Age: 21 Year
  Sex: Male
  Weight: 78.75 kg

DRUGS (4)
  1. VIVISCAL SUPPLEMENT [Concomitant]
  2. CLARITIN [Concomitant]
     Active Substance: LORATADINE
  3. FINASTERIDE. [Suspect]
     Active Substance: FINASTERIDE
     Indication: ANDROGENETIC ALOPECIA
     Dosage: ?          QUANTITY:1 TABLET(S);?
     Route: 048
     Dates: start: 20120525, end: 20150916
  4. MINOXIDIL. [Concomitant]
     Active Substance: MINOXIDIL

REACTIONS (5)
  - Body temperature decreased [None]
  - Cognitive disorder [None]
  - Loss of libido [None]
  - Depressed mood [None]
  - Erectile dysfunction [None]

NARRATIVE: CASE EVENT DATE: 20150110
